FAERS Safety Report 18288902 (Version 3)
Quarter: 2020Q4

REPORT INFORMATION
  Report Type: Spontaneous
  Country: BR (occurrence: BR)
  Receive Date: 20200921
  Receipt Date: 20201105
  Transmission Date: 20210113
  Serious: Yes (Other)
  Sender: FDA-Public Use
  Company Number: BR-SHIRE-BR202029232

PATIENT

DRUGS (6)
  1. RITALINA [Concomitant]
     Active Substance: METHYLPHENIDATE HYDROCHLORIDE
     Indication: ATTENTION DEFICIT HYPERACTIVITY DISORDER
  2. METHYLPHENIDATE. [Concomitant]
     Active Substance: METHYLPHENIDATE
     Indication: PRODUCT USED FOR UNKNOWN INDICATION
  3. VENVANSE [Suspect]
     Active Substance: LISDEXAMFETAMINE DIMESYLATE
     Indication: ATTENTION DEFICIT HYPERACTIVITY DISORDER
     Dosage: 100 MILLIGRAM, 1X/DAY:QD
     Route: 065
  4. VENVANSE [Suspect]
     Active Substance: LISDEXAMFETAMINE DIMESYLATE
     Dosage: 50 MILLIGRAM, 2X/DAY:BID
     Route: 065
  5. VENVANSE [Suspect]
     Active Substance: LISDEXAMFETAMINE DIMESYLATE
     Dosage: 70 MILLIGRAM, QD
  6. VENVANSE [Suspect]
     Active Substance: LISDEXAMFETAMINE DIMESYLATE
     Dosage: 70 MILLIGRAM, 1X/DAY:QD
     Route: 065

REACTIONS (20)
  - Seizure [Unknown]
  - Drug ineffective [Unknown]
  - Obesity [Unknown]
  - Neck pain [Unknown]
  - Abdominal pain upper [Unknown]
  - Frustration tolerance decreased [Unknown]
  - Loss of personal independence in daily activities [Unknown]
  - Off label use [Unknown]
  - Drug dependence [Unknown]
  - Weight increased [Unknown]
  - Somnolence [Unknown]
  - Product availability issue [Unknown]
  - Back pain [Unknown]
  - Condition aggravated [Unknown]
  - Fatigue [Unknown]
  - Eating disorder [Unknown]
  - Autism spectrum disorder [Unknown]
  - Juvenile myoclonic epilepsy [Unknown]
  - Sleep disorder [Not Recovered/Not Resolved]
  - Nausea [Unknown]

NARRATIVE: CASE EVENT DATE: 2018
